FAERS Safety Report 16814714 (Version 1)
Quarter: 2019Q3

REPORT INFORMATION
  Report Type: Spontaneous
  Country: DE (occurrence: DE)
  Receive Date: 20190917
  Receipt Date: 20190917
  Transmission Date: 20191005
  Serious: Yes (Death, Other)
  Sender: FDA-Public Use
  Company Number: DE-SA-2019SA244307

PATIENT
  Age: 81 Year
  Sex: Female

DRUGS (1)
  1. CEREZYME [Suspect]
     Active Substance: IMIGLUCERASE

REACTIONS (1)
  - Multimorbidity [Fatal]

NARRATIVE: CASE EVENT DATE: 20190517
